FAERS Safety Report 9161886 (Version 1)
Quarter: 2013Q1

REPORT INFORMATION
  Report Type: Spontaneous
  Country: GB (occurrence: None)
  Receive Date: 20130225
  Receipt Date: 20130225
  Transmission Date: 20140127
  Serious: Yes (Hospitalization)
  Sender: FDA-Public Use
  Company Number: CL-472-2013

PATIENT
  Age: 29 Year
  Sex: Male

DRUGS (1)
  1. HALOPERIDOL [Suspect]

REACTIONS (6)
  - Angioedema [None]
  - Anxiety [None]
  - Drooling [None]
  - Dysphonia [None]
  - Blood pressure increased [None]
  - Discomfort [None]
